FAERS Safety Report 10368216 (Version 1)
Quarter: 2014Q3

REPORT INFORMATION
  Report Type: Spontaneous
  Country: US (occurrence: None)
  Receive Date: 20140805
  Receipt Date: 20140805
  Transmission Date: 20150326
  Serious: Yes (Other)
  Sender: FDA-Public Use
  Company Number: FK201403086

PATIENT
  Age: 47 Year
  Sex: Male

DRUGS (3)
  1. ETOPOSIDE (ETOPOSIDE) [Suspect]
     Active Substance: ETOPOSIDE
     Indication: OSTEOSARCOMA
  2. IFOSFAMIDE (IFOSFAMIDE) (IFOSFAMIDE) [Suspect]
     Active Substance: IFOSFAMIDE
     Indication: OSTEOSARCOMA
  3. METHOTREXATE (METHOTREXATE) (METHOTREXATE) [Suspect]
     Active Substance: METHOTREXATE
     Indication: OSTEOSARCOMA

REACTIONS (1)
  - Skin hyperpigmentation [None]
